FAERS Safety Report 8520873-0 (Version None)
Quarter: 2012Q3

REPORT INFORMATION
  Report Type: 
  Country: None (occurrence: None)
  Receive Date: 20120719
  Receipt Date: 20120713
  Transmission Date: 20120928
  Serious: Yes (Other)
  Sender: FDA-Public Use
  Company Number: ES-SANOFI-AVENTIS-2012SA050174

PATIENT
  Age: 81 Year
  Sex: Female

DRUGS (2)
  1. LINEZOLID [Interacting]
     Route: 048
  2. RIFAMPICIN [Suspect]
     Route: 065

REACTIONS (3)
  - DRUG INTERACTION [None]
  - INFECTION [None]
  - DRUG LEVEL DECREASED [None]
